FAERS Safety Report 20850661 (Version 1)
Quarter: 2022Q2

REPORT INFORMATION
  Report Type: Spontaneous
  Country: IE (occurrence: IE)
  Receive Date: 20220519
  Receipt Date: 20220519
  Transmission Date: 20220721
  Serious: Yes (Hospitalization)
  Sender: FDA-Public Use
  Company Number: IE-MYLANLABS-2022M1035873

PATIENT
  Age: 43 Year
  Sex: Female

DRUGS (4)
  1. CLOZARIL [Suspect]
     Active Substance: CLOZAPINE
     Indication: Schizophrenia
     Dosage: 325 MILLIGRAM, QD
     Route: 048
     Dates: start: 20010701
  2. CLOZARIL [Suspect]
     Active Substance: CLOZAPINE
     Dosage: 15 X 100MG
     Route: 048
     Dates: start: 20220509
  3. CLOZARIL [Suspect]
     Active Substance: CLOZAPINE
     Dosage: 25 MILLIGRAM
     Route: 048
     Dates: start: 20220513
  4. CLOZARIL [Suspect]
     Active Substance: CLOZAPINE
     Dosage: UNK, ANOTHER OVERDOSE 10 TABLETS OF 100MG
     Route: 048
     Dates: start: 20220514

REACTIONS (3)
  - Overdose [Unknown]
  - White blood cell count increased [Unknown]
  - Tachycardia [Recovered/Resolved]

NARRATIVE: CASE EVENT DATE: 20220509
